FAERS Safety Report 5952215-9 (Version None)
Quarter: 2008Q4

REPORT INFORMATION
  Report Type: 
  Country: None (occurrence: None)
  Receive Date: 20081113
  Receipt Date: 20081104
  Transmission Date: 20090506
  Serious: Yes (Disabling, Other)
  Sender: FDA-Public Use
  Company Number: AU-ELI_LILLY_AND_COMPANY-AU200810004737

PATIENT
  Age: 18 Year
  Sex: Female

DRUGS (2)
  1. ZYPREXA [Suspect]
     Dosage: 10 MG, DAILY (1/D)
     Dates: start: 20080301
  2. ZYPREXA [Suspect]
     Dosage: 2.5 MG, 2/D
     Dates: start: 20080101, end: 20080101

REACTIONS (5)
  - ACNE [None]
  - AMENORRHOEA [None]
  - BLOOD TESTOSTERONE INCREASED [None]
  - POLYCYSTIC OVARIES [None]
  - WEIGHT INCREASED [None]
